FAERS Safety Report 14532015 (Version 3)
Quarter: 2018Q3

REPORT INFORMATION
  Report Type: Report from Study
  Country: CO (occurrence: CO)
  Receive Date: 20180214
  Receipt Date: 20180903
  Transmission Date: 20181010
  Serious: Yes (Hospitalization, Other)
  Sender: FDA-Public Use
  Company Number: PHHY2018CO021405

PATIENT
  Sex: Female
  Weight: 82 kg

DRUGS (2)
  1. REVOLADE [Suspect]
     Active Substance: ELTROMBOPAG
     Indication: IMMUNE THROMBOCYTOPENIC PURPURA
     Dosage: 2 MG, QD
     Route: 048
     Dates: start: 2013, end: 201803
  2. ACETAMINOPHEN. [Concomitant]
     Active Substance: ACETAMINOPHEN
     Indication: PRODUCT USED FOR UNKNOWN INDICATION
     Route: 065

REACTIONS (6)
  - Bronchitis [Recovered/Resolved]
  - Infarction [Unknown]
  - Cough [Recovered/Resolved]
  - Thrombosis [Unknown]
  - Platelet count decreased [Unknown]
  - Inappropriate schedule of drug administration [Unknown]
